FAERS Safety Report 10146955 (Version 3)
Quarter: 2014Q2

REPORT INFORMATION
  Report Type: Spontaneous
  Country: US (occurrence: US)
  Receive Date: 20140501
  Receipt Date: 20140512
  Transmission Date: 20141212
  Serious: Yes (Hospitalization)
  Sender: FDA-Public Use
  Company Number: US-GLAXOSMITHKLINE-A1070813A

PATIENT
  Age: 71 Year
  Sex: Female

DRUGS (19)
  1. COREG [Suspect]
     Indication: CARDIAC FAILURE CONGESTIVE
     Dosage: 25MG TWICE PER DAY
     Route: 048
     Dates: start: 2005
  2. DIGOXIN [Concomitant]
  3. SYNTHROID [Concomitant]
  4. BABY ASPIRIN [Concomitant]
  5. PROBIOTIC [Concomitant]
  6. WARFARIN [Concomitant]
  7. ESTRADIOL [Concomitant]
  8. CIPRO [Concomitant]
  9. FUROSEMIDE [Concomitant]
  10. MAGNESIUM [Concomitant]
  11. VITAMIN D [Concomitant]
  12. KELP [Concomitant]
  13. VITAMIN C [Concomitant]
  14. HAWTHORN [Concomitant]
  15. ZINC [Concomitant]
  16. VITAMIN E [Concomitant]
  17. CALCIUM [Concomitant]
  18. FISH OIL [Concomitant]
  19. PROTEIN SHAKE [Concomitant]

REACTIONS (1)
  - Cardiac operation [Recovered/Resolved]
